FAERS Safety Report 6669258-2 (Version None)
Quarter: 2010Q2

REPORT INFORMATION
  Report Type: 
  Country: None (occurrence: None)
  Receive Date: 20100406
  Receipt Date: 20100331
  Transmission Date: 20101027
  Serious: Yes (Hospitalization)
  Sender: FDA-Public Use
  Company Number: US-BRISTOL-MYERS SQUIBB COMPANY-15045602

PATIENT
  Sex: Male

DRUGS (3)
  1. GLUCOPHAGE [Suspect]
  2. BYETTA [Suspect]
  3. ACTOS [Suspect]

REACTIONS (1)
  - PNEUMONIA [None]
